FAERS Safety Report 11371234 (Version 1)
Quarter: 2015Q3

REPORT INFORMATION
  Report Type: Spontaneous
  Country: FR (occurrence: FR)
  Receive Date: 20150812
  Receipt Date: 20150812
  Transmission Date: 20151125
  Serious: Yes (Hospitalization, Other)
  Sender: FDA-Public Use
  Company Number: FR-TEVA-584673ISR

PATIENT
  Sex: Male

DRUGS (2)
  1. SIFROL [Concomitant]
     Active Substance: PRAMIPEXOLE
     Indication: PARKINSON^S DISEASE
     Dosage: 1.05 MILLIGRAM DAILY;
  2. CARBIDOPA AND LEVODOPA [Suspect]
     Active Substance: CARBIDOPA\LEVODOPA
     Indication: PARKINSON^S DISEASE
     Dosage: 1.5 DOSAGE FORMS DAILY; CARBIDOPA 10 MG AND LEVODOPA 100 MG, 1.5 DF 3 TIME PER DAY
     Route: 048
     Dates: start: 2012

REACTIONS (1)
  - Renal failure [Unknown]
